FAERS Safety Report 5244021-8 (Version None)
Quarter: 2007Q1

REPORT INFORMATION
  Report Type: 
  Country: None (occurrence: None)
  Receive Date: 20070215
  Receipt Date: 20070208
  Transmission Date: 20070707
  Serious: Yes (Disabling)
  Sender: FDA-Public Use
  Company Number: 30883

PATIENT
  Age: 26 Year
  Sex: Female

DRUGS (1)
  1. ALDARA [Suspect]
     Indication: ANOGENITAL WARTS
     Dosage: (1 DOSAGE FORMS, 3 IN 1 WEEK(S); TOPICAL
     Route: 061
     Dates: start: 20061120, end: 20070117

REACTIONS (5)
  - ANAL DISCOMFORT [None]
  - APPLICATION SITE INFLAMMATION [None]
  - APPLICATION SITE ULCER [None]
  - PROCTALGIA [None]
  - PRURITUS ANI [None]
